FAERS Safety Report 18265479 (Version 2)
Quarter: 2020Q3

REPORT INFORMATION
  Report Type: Spontaneous
  Country: DE (occurrence: DE)
  Receive Date: 20200915
  Receipt Date: 20200916
  Transmission Date: 20201103
  Serious: Yes (Hospitalization, Other)
  Sender: FDA-Public Use
  Company Number: DE-B.I. PHARMACEUTICALS,INC./RIDGEFIELD-2020-BI-045033

PATIENT
  Sex: Female

DRUGS (56)
  1. SKID [Suspect]
     Active Substance: MINOCYCLINE HYDROCHLORIDE
     Indication: PRODUCT USED FOR UNKNOWN INDICATION
     Dosage: UNK
  2. VALSARTAN. [Suspect]
     Active Substance: VALSARTAN
     Dosage: QD (1 IN MORNING AND 1/2 IN EVENING)
  3. DICLOFENAC RATIOPHARM [DICLOFENAC SODIUM] [Suspect]
     Active Substance: DICLOFENAC SODIUM
     Indication: PRODUCT USED FOR UNKNOWN INDICATION
     Dosage: UNK
     Dates: start: 20171115, end: 20180608
  4. MINOCYCLIN RATIOPHARM [Suspect]
     Active Substance: MINOCYCLINE HYDROCHLORIDE
     Indication: PRODUCT USED FOR UNKNOWN INDICATION
     Dosage: UNK
     Dates: start: 20161216
  5. AMLODIPIN DEXCEL [AMLODIPINE MALEATE] [Suspect]
     Active Substance: AMLODIPINE MALEATE
     Indication: PRODUCT USED FOR UNKNOWN INDICATION
     Dosage: UNK
  6. L?THYROXINE [LEVOTHYROXINE] [Suspect]
     Active Substance: LEVOTHYROXINE
     Dosage: UNK
     Dates: start: 20180305, end: 20180608
  7. VALSARTAN. [Suspect]
     Active Substance: VALSARTAN
     Dosage: 240 MILLIGRAM, PM (NOT REPORTED THE EVENING TOTAL 240 MG DAILY)
  8. VALSARTAN. [Suspect]
     Active Substance: VALSARTAN
     Dates: start: 201906, end: 201907
  9. VALSACOR [Suspect]
     Active Substance: VALSARTAN
     Dosage: UNK
     Dates: start: 20190521, end: 20191021
  10. SPIRIVA [Suspect]
     Active Substance: TIOTROPIUM BROMIDE MONOHYDRATE
     Dosage: UNK
     Dates: start: 20170619, end: 20170914
  11. SPIRIVA [Suspect]
     Active Substance: TIOTROPIUM BROMIDE MONOHYDRATE
     Dosage: UNK
  12. SPIRIVA [Suspect]
     Active Substance: TIOTROPIUM BROMIDE MONOHYDRATE
     Dosage: UNK
     Dates: start: 20180608
  13. METOPROLOL ABZ [Suspect]
     Active Substance: METOPROLOL TARTRATE
     Route: 065
     Dates: start: 20161010, end: 20161117
  14. BERODUAL N [Suspect]
     Active Substance: FENOTEROL HYDROBROMIDE\IPRATROPIUM BROMIDE
     Indication: PRODUCT USED FOR UNKNOWN INDICATION
     Dosage: UNK
     Dates: start: 20160317, end: 20160920
  15. RAMIPRIL. [Suspect]
     Active Substance: RAMIPRIL
     Indication: PRODUCT USED FOR UNKNOWN INDICATION
     Dosage: UNK
     Dates: start: 20160412
  16. VALSARTAN DURA [Suspect]
     Active Substance: VALSARTAN
     Indication: HYPERTENSION
     Dosage: 160 MILLIGRAM, QD
     Dates: start: 201610, end: 201706
  17. CEFUROX BASICS SUN [Suspect]
     Active Substance: CEFUROXIME AXETIL
     Indication: PRODUCT USED FOR UNKNOWN INDICATION
     Dosage: UNK
     Dates: start: 20160927, end: 20171005
  18. L?THYROXIN?HENNING [Suspect]
     Active Substance: LEVOTHYROXINE SODIUM
     Indication: PRODUCT USED FOR UNKNOWN INDICATION
     Dosage: UNK
  19. VALSARTAN. [Suspect]
     Active Substance: VALSARTAN
     Dates: start: 201709, end: 201811
  20. SPIRIVA [Suspect]
     Active Substance: TIOTROPIUM BROMIDE MONOHYDRATE
     Dosage: UNK
     Dates: start: 20161216, end: 20170410
  21. METOPROLOL ABZ [Suspect]
     Active Substance: METOPROLOL TARTRATE
     Route: 065
     Dates: start: 20170515, end: 20170619
  22. SPIRIVA [Suspect]
     Active Substance: TIOTROPIUM BROMIDE MONOHYDRATE
     Indication: PRODUCT USED FOR UNKNOWN INDICATION
     Dosage: UNK
     Dates: start: 20161010
  23. SPIRIVA [Suspect]
     Active Substance: TIOTROPIUM BROMIDE MONOHYDRATE
     Dosage: UNK
     Dates: start: 20161010, end: 20170210
  24. TAVOR (LORAZEPAM) [Suspect]
     Active Substance: LORAZEPAM
     Indication: PRODUCT USED FOR UNKNOWN INDICATION
     Dosage: UNK
  25. CELESTENE N [Suspect]
     Active Substance: BETAMETHASONE
     Indication: PRODUCT USED FOR UNKNOWN INDICATION
     Dosage: UNK
  26. AMLODIPIN DEXCEL [AMLODIPINE MALEATE] [Suspect]
     Active Substance: AMLODIPINE MALEATE
     Dosage: UNK
     Dates: start: 20161024, end: 20170109
  27. VALSARTAN DURA [Suspect]
     Active Substance: VALSARTAN
     Dosage: 240 MILLIGRAM, PM (NOT REPORTED THE EVENING TOTAL 240 MG DAILY)
     Dates: start: 201906, end: 201907
  28. SIMVA [Suspect]
     Active Substance: SIMVASTATIN
     Indication: PRODUCT USED FOR UNKNOWN INDICATION
     Dosage: UNK
     Dates: start: 20161010
  29. VALSARTAN. [Suspect]
     Active Substance: VALSARTAN
  30. VALSACOR [Suspect]
     Active Substance: VALSARTAN
     Indication: HYPERTENSION
     Dosage: UNK
     Dates: start: 20190304, end: 20190423
  31. METOPROLOL ABZ [Suspect]
     Active Substance: METOPROLOL TARTRATE
     Indication: PRODUCT USED FOR UNKNOWN INDICATION
     Dosage: UNK
     Route: 065
     Dates: start: 20171115, end: 20180305
  32. METOPROLOL ABZ [Suspect]
     Active Substance: METOPROLOL TARTRATE
     Route: 065
     Dates: start: 20170814, end: 20171005
  33. FOSFOMYCIN EBERTH [Suspect]
     Active Substance: FOSFOMYCIN TROMETHAMINE
     Indication: PRODUCT USED FOR UNKNOWN INDICATION
     Dosage: UNK
  34. L?THYROXINE [LEVOTHYROXINE] [Suspect]
     Active Substance: LEVOTHYROXINE
     Dosage: UNK
     Dates: start: 20170619, end: 20171115
  35. VALSARTAN DURA [Suspect]
     Active Substance: VALSARTAN
     Dosage: 80 MILLIGRAM, BID ((IN THE MORNING AND EVENING)
  36. VALSARTAN. [Suspect]
     Active Substance: VALSARTAN
     Dosage: 80 MILLIGRAM, BID ((IN THE MORNING AND EVENING)
  37. VALSARTAN. [Suspect]
     Active Substance: VALSARTAN
     Dates: start: 201610, end: 201706
  38. CLARILIND [Suspect]
     Active Substance: CLARITHROMYCIN
     Indication: PRODUCT USED FOR UNKNOWN INDICATION
     Dosage: UNK
  39. SPIRIVA [Suspect]
     Active Substance: TIOTROPIUM BROMIDE MONOHYDRATE
     Dosage: UNK
  40. SPIRIVA [Suspect]
     Active Substance: TIOTROPIUM BROMIDE MONOHYDRATE
     Dosage: UNK
     Dates: start: 20171214, end: 20180305
  41. L?THYROXIN ARISTO [Suspect]
     Active Substance: LEVOTHYROXINE SODIUM
     Indication: PRODUCT USED FOR UNKNOWN INDICATION
     Dosage: UNK
  42. DICLO 1A PHARMA [Suspect]
     Active Substance: DICLOFENAC SODIUM
     Indication: PRODUCT USED FOR UNKNOWN INDICATION
     Dosage: UNK
  43. VALSACOR [Suspect]
     Active Substance: VALSARTAN
     Dates: start: 20190716, end: 20191017
  44. PREDNISOLON [PREDNISOLONE] [Suspect]
     Active Substance: PREDNISOLONE
     Indication: PRODUCT USED FOR UNKNOWN INDICATION
     Dosage: UNK
  45. METOPROLOL ABZ [Suspect]
     Active Substance: METOPROLOL TARTRATE
     Route: 065
  46. JEXT [Suspect]
     Active Substance: EPINEPHRINE BITARTRATE
     Indication: PRODUCT USED FOR UNKNOWN INDICATION
     Dosage: UNK
  47. AMLODIPIN DEXCEL [AMLODIPINE MALEATE] [Suspect]
     Active Substance: AMLODIPINE MALEATE
     Dosage: UNK
     Dates: start: 20170410, end: 20170619
  48. VALSARTAN 1A PHARMA [Suspect]
     Active Substance: VALSARTAN
     Indication: HYPERTENSION
     Dosage: UNK
  49. VALSARTAN DURA [Suspect]
     Active Substance: VALSARTAN
     Dosage: 240 MILLIGRAM, QD (1 IN MORNING AND 1/2 IN EVENING)
     Dates: start: 201709, end: 201811
  50. SIMVA [Suspect]
     Active Substance: SIMVASTATIN
     Dosage: UNK
     Dates: start: 20170410, end: 20170619
  51. VALSARTAN. [Suspect]
     Active Substance: VALSARTAN
     Indication: HYPERTENSION
     Dosage: UNK
     Dates: start: 20170816, end: 201909
  52. AZITHROMYCIN HEC [Suspect]
     Active Substance: AZITHROMYCIN
     Indication: PRODUCT USED FOR UNKNOWN INDICATION
     Dosage: UNK
  53. PANTOPRAZOL HEUMANN [Suspect]
     Active Substance: PANTOPRAZOLE SODIUM
     Indication: PRODUCT USED FOR UNKNOWN INDICATION
     Dosage: UNK
  54. CEFUROXIM HEUMANN [Suspect]
     Active Substance: CEFUROXIME AXETIL
     Indication: PRODUCT USED FOR UNKNOWN INDICATION
     Dosage: UNK
  55. METOPROLOL ABZ [Suspect]
     Active Substance: METOPROLOL TARTRATE
     Route: 065
     Dates: start: 20170109, end: 20170323
  56. L?THYROXINE [LEVOTHYROXINE] [Suspect]
     Active Substance: LEVOTHYROXINE
     Indication: PRODUCT USED FOR UNKNOWN INDICATION
     Dosage: UNK
     Dates: start: 20170109, end: 20170410

REACTIONS (13)
  - Panic attack [Unknown]
  - Fear of disease [Unknown]
  - Nausea [Unknown]
  - Depression [Not Recovered/Not Resolved]
  - Hypertension [Unknown]
  - Hyperhidrosis [Unknown]
  - Sense of oppression [Unknown]
  - Anxiety [Unknown]
  - Dizziness [Unknown]
  - Dyspnoea [Unknown]
  - Mental impairment [Not Recovered/Not Resolved]
  - Impaired quality of life [Not Recovered/Not Resolved]
  - Fatigue [Unknown]
